FAERS Safety Report 7551492-0 (Version None)
Quarter: 2011Q2

REPORT INFORMATION
  Report Type: 
  Country: None (occurrence: None)
  Receive Date: 20110609
  Receipt Date: 20110524
  Transmission Date: 20111010
  Serious: Yes (Hospitalization)
  Sender: FDA-Public Use
  Company Number: 2011MA005429

PATIENT
  Age: 17 Year
  Sex: Male

DRUGS (4)
  1. AMOXICILLIN [Concomitant]
  2. PL GRANULES [Concomitant]
  3. ZONISAMIDE [Concomitant]
  4. CARBAMAZEPINE [Suspect]
     Indication: EPILEPSY
     Dates: start: 20070501

REACTIONS (2)
  - TOXIC EPIDERMAL NECROLYSIS [None]
  - DRUG RASH WITH EOSINOPHILIA AND SYSTEMIC SYMPTOMS [None]
